FAERS Safety Report 21142416 (Version 1)
Quarter: 2022Q3

REPORT INFORMATION
  Report Type: Report from Study
  Country: IT (occurrence: IT)
  Receive Date: 20220728
  Receipt Date: 20220728
  Transmission Date: 20221027
  Serious: Yes (Other)
  Sender: FDA-Public Use
  Company Number: None

PATIENT
  Age: 15 Year
  Sex: Male
  Weight: 69 kg

DRUGS (15)
  1. METHOTREXATE [Suspect]
     Active Substance: METHOTREXATE
     Indication: Non-Hodgkin^s lymphoma
     Dosage: 9220 MG, DAILY
     Route: 042
     Dates: start: 20220518
  2. METHOTREXATE [Suspect]
     Active Substance: METHOTREXATE
     Dosage: 9220 MG, DAILY
     Route: 042
     Dates: start: 20220531
  3. METHOTREXATE [Suspect]
     Active Substance: METHOTREXATE
     Dosage: 9625 MG, DAILY
     Route: 042
     Dates: start: 20220614
  4. METHOTREXATE [Suspect]
     Active Substance: METHOTREXATE
     Dosage: 9720 MG, DAILY
     Route: 042
     Dates: start: 20220629
  5. METHOTREXATE [Suspect]
     Active Substance: METHOTREXATE
     Indication: Non-Hodgkin^s lymphoma
     Dosage: 12 MG
     Route: 037
     Dates: start: 20220518, end: 20220629
  6. PURINETHOL [Suspect]
     Active Substance: MERCAPTOPURINE
     Indication: Non-Hodgkin^s lymphoma
     Dosage: 37.5 MG, ALTERNATE DAY
     Route: 048
     Dates: start: 20220510, end: 20220704
  7. PURINETHOL [Suspect]
     Active Substance: MERCAPTOPURINE
     Dosage: 50 MG, ALTERNATE DAY
     Dates: start: 20220510, end: 20220704
  8. LEUCOVORIN CALCIUM [Concomitant]
     Active Substance: LEUCOVORIN CALCIUM
     Indication: Non-Hodgkin^s lymphoma
     Dosage: 28 MG
     Route: 042
     Dates: start: 20220519
  9. LEUCOVORIN CALCIUM [Concomitant]
     Active Substance: LEUCOVORIN CALCIUM
     Dosage: 14 MG
     Route: 042
     Dates: start: 20220520
  10. LEUCOVORIN CALCIUM [Concomitant]
     Active Substance: LEUCOVORIN CALCIUM
     Dosage: 73 MG
     Route: 042
     Dates: start: 20220602
  11. LEUCOVORIN CALCIUM [Concomitant]
     Active Substance: LEUCOVORIN CALCIUM
     Dosage: 14 MG
     Route: 042
     Dates: start: 20220602
  12. LEUCOVORIN CALCIUM [Concomitant]
     Active Substance: LEUCOVORIN CALCIUM
     Dosage: 28 MG
     Route: 042
     Dates: start: 20220602, end: 20220603
  13. LEUCOVORIN CALCIUM [Concomitant]
     Active Substance: LEUCOVORIN CALCIUM
     Dosage: 14 MG
     Route: 042
     Dates: start: 20220603, end: 20220604
  14. LEUCOVORIN CALCIUM [Concomitant]
     Active Substance: LEUCOVORIN CALCIUM
     Dosage: 14 MG
     Route: 042
     Dates: start: 20220616, end: 20220617
  15. LEUCOVORIN CALCIUM [Concomitant]
     Active Substance: LEUCOVORIN CALCIUM
     Dosage: 15 MG
     Route: 042
     Dates: start: 20220701, end: 20220702

REACTIONS (9)
  - Hyperbilirubinaemia [Not Recovered/Not Resolved]
  - Leukopenia [Not Recovered/Not Resolved]
  - Folliculitis [Recovered/Resolved]
  - Headache [Recovered/Resolved]
  - Nausea [Recovered/Resolved]
  - Vomiting [Recovered/Resolved]
  - Stomatitis [Recovered/Resolved]
  - Anaemia [Not Recovered/Not Resolved]
  - Genital erythema [Recovered/Resolved]

NARRATIVE: CASE EVENT DATE: 20220519
